FAERS Safety Report 12527639 (Version 1)
Quarter: 2016Q3

REPORT INFORMATION
  Report Type: Spontaneous
  Country: AU (occurrence: AU)
  Receive Date: 20160705
  Receipt Date: 20160705
  Transmission Date: 20161109
  Serious: Yes (Other)
  Sender: FDA-Public Use
  Company Number: AU-HERITAGE PHARMACEUTICALS-2016HTG00169

PATIENT

DRUGS (1)
  1. VERAPAMIL HYDROCHLORIDE. [Suspect]
     Active Substance: VERAPAMIL HYDROCHLORIDE
     Route: 065

REACTIONS (5)
  - Hypoglycaemia [Unknown]
  - Hyperkalaemia [Unknown]
  - Hypophosphataemia [Unknown]
  - Cardiotoxicity [Unknown]
  - Hypomagnesaemia [Unknown]
